FAERS Safety Report 22356658 (Version 1)
Quarter: 2023Q2

REPORT INFORMATION
  Report Type: Report from Study
  Country: US (occurrence: US)
  Receive Date: 20230523
  Receipt Date: 20230523
  Transmission Date: 20230721
  Serious: Yes (Hospitalization)
  Sender: FDA-Public Use
  Company Number: US-PFIZER INC-US-GBT-019221

PATIENT
  Age: 23 Year
  Sex: Male

DRUGS (11)
  1. VOXELOTOR [Suspect]
     Active Substance: VOXELOTOR
     Indication: Anaemia
     Dosage: 1500 MG, 1X/DAY
     Dates: start: 20200109, end: 20211130
  2. VOXELOTOR [Suspect]
     Active Substance: VOXELOTOR
     Dosage: 1500 MG, 1X/DAY
     Dates: start: 20211205
  3. MS CONTIN [Concomitant]
     Active Substance: MORPHINE SULFATE
     Indication: Sickle cell disease
     Dosage: 30 MG, 2X/DAY
     Route: 048
     Dates: start: 20191213, end: 20220520
  4. GLUTAMINE [ALANYL GLUTAMINE] [Concomitant]
     Indication: Sickle cell disease
     Dosage: 10 G, 2X/DAY
     Route: 048
     Dates: start: 20190603
  5. ENDARI [Concomitant]
     Active Substance: GLUTAMINE
     Indication: Product used for unknown indication
  6. LEVOFLOXACIN [Concomitant]
     Active Substance: LEVOFLOXACIN
     Indication: Prophylaxis
     Dates: start: 202111, end: 202111
  7. ZOFRAN [Concomitant]
     Active Substance: ONDANSETRON HYDROCHLORIDE
     Indication: Sickle cell anaemia with crisis
     Route: 042
     Dates: start: 20211216, end: 20211216
  8. GABAPENTIN [Concomitant]
     Active Substance: GABAPENTIN
  9. HYDROXYUREA [Concomitant]
     Active Substance: HYDROXYUREA
  10. OXYCODONE [Concomitant]
     Active Substance: OXYCODONE
  11. PFIZER-BIONTECH COVID-19 VACCINE [Concomitant]
     Active Substance: TOZINAMERAN

REACTIONS (4)
  - Sickle cell anaemia with crisis [Recovered/Resolved]
  - Sickle cell anaemia with crisis [Recovered/Resolved]
  - Sickle cell anaemia with crisis [Recovered/Resolved]
  - Pain [Recovered/Resolved]

NARRATIVE: CASE EVENT DATE: 20211114
